FAERS Safety Report 22002812 (Version 1)
Quarter: 2023Q1

REPORT INFORMATION
  Report Type: Other
  Country: US (occurrence: None)
  Receive Date: 20230217
  Receipt Date: 20230217
  Transmission Date: 20230418
  Serious: Yes (Hospitalization)
  Sender: FDA-Public Use
  Company Number: US-ROCHE-3287302

PATIENT
  Age: 53 Year
  Sex: Male

DRUGS (1)
  1. OCREVUS [Suspect]
     Active Substance: OCRELIZUMAB
     Indication: Multiple sclerosis
     Dosage: 300 MG INTRAVENOUSLY ON DAY 1 AND DAY 15 THEN INFUSE 600MG INTRAVENOUSLY EVERY 24 WEEK ?VIAL
     Route: 042

REACTIONS (1)
  - Myocardial infarction [Unknown]
